FAERS Safety Report 15699347 (Version 1)
Quarter: 2018Q4

REPORT INFORMATION
  Report Type: Spontaneous
  Country: DE (occurrence: DE)
  Receive Date: 20181207
  Receipt Date: 20181207
  Transmission Date: 20190205
  Serious: Yes (Hospitalization)
  Sender: FDA-Public Use
  Company Number: PHHY2018DE173883

PATIENT
  Sex: Female
  Weight: 57 kg

DRUGS (9)
  1. DUROGESIC [Concomitant]
     Active Substance: FENTANYL
     Indication: PAIN
     Dosage: 25 UG, (EVERY 3 DAY)
     Route: 065
     Dates: start: 20180201
  2. DOCETAXEL. [Suspect]
     Active Substance: DOCETAXEL
     Indication: BREAST CANCER
     Dosage: 75 MG/M2, Q3W
     Route: 042
     Dates: start: 20170803, end: 20180125
  3. TRASTUZUMAB. [Suspect]
     Active Substance: TRASTUZUMAB
     Dosage: 8 MG/KG, Q3W
     Route: 042
     Dates: start: 20170824, end: 20180125
  4. TRASTUZUMAB. [Suspect]
     Active Substance: TRASTUZUMAB
     Indication: BREAST CANCER
     Dosage: 6 MG/KG, MAINTENANCE DOSE
     Route: 042
  5. PERTUZUMAB. [Suspect]
     Active Substance: PERTUZUMAB
     Indication: BREAST CANCER
     Dosage: 420 MG, Q3W, MAINTENANCE DOSE
     Route: 042
     Dates: start: 20170824, end: 20180125
  6. LETROZOL [Concomitant]
     Active Substance: LETROZOLE
     Indication: BREAST CANCER
     Dosage: 2.5 MG, QD
     Route: 048
     Dates: start: 20170101
  7. DEKRISTOL [Concomitant]
     Active Substance: CHOLECALCIFEROL
     Indication: OSTEOPOROSIS
     Dosage: 20000 IU, UNK
     Route: 048
  8. PERTUZUMAB. [Suspect]
     Active Substance: PERTUZUMAB
     Dosage: 840 MG, LOADING DOSE AS PER PROTOCOL
     Route: 042
  9. DENOSUMAB [Concomitant]
     Active Substance: DENOSUMAB
     Indication: OSTEOPOROSIS
     Dosage: 60 MG, EVERY 6 MONTH
     Route: 058
     Dates: start: 20180221

REACTIONS (4)
  - Spinal fracture [Recovered/Resolved]
  - Osteoporotic fracture [Recovered/Resolved]
  - Mobility decreased [Unknown]
  - Back pain [Unknown]

NARRATIVE: CASE EVENT DATE: 20170803
